FAERS Safety Report 18452042 (Version 1)
Quarter: 2020Q4

REPORT INFORMATION
  Report Type: Spontaneous
  Country: GB (occurrence: GB)
  Receive Date: 20201102
  Receipt Date: 20201102
  Transmission Date: 20210114
  Serious: Yes (Other)
  Sender: FDA-Public Use
  Company Number: GB-SAMSUNG BIOEPIS-SB-2020-33010

PATIENT
  Age: 36 Year
  Sex: Male
  Weight: 74 kg

DRUGS (3)
  1. PREDNISOLONE. [Concomitant]
     Active Substance: PREDNISOLONE
     Indication: UVEITIS
     Dosage: UNKNOWN, ONGOING
     Route: 048
     Dates: start: 2019
  2. HUMIRA [Concomitant]
     Active Substance: ADALIMUMAB
     Indication: UVEITIS
     Dosage: UNKNOWN
     Route: 065
     Dates: start: 201711, end: 201904
  3. IMRALDI [Suspect]
     Active Substance: ADALIMUMAB
     Indication: AXIAL SPONDYLOARTHRITIS
     Route: 058
     Dates: start: 201904, end: 202004

REACTIONS (2)
  - Uveitis [Recovering/Resolving]
  - Product substitution issue [Unknown]
